FAERS Safety Report 5072498-X (Version None)
Quarter: 2006Q3

REPORT INFORMATION
  Report Type: 
  Country: None (occurrence: None)
  Receive Date: 20060801
  Receipt Date: 20060719
  Transmission Date: 20061208
  Serious: Yes (Other)
  Sender: FDA-Public Use
  Company Number: 2006089531

PATIENT

DRUGS (1)
  1. SOLU-MEDROL [Suspect]
     Indication: BLINDNESS
     Dosage: 1 GRAM (1 GRAM, 1 IN 1 D), INTRAVENOUS
     Route: 042

REACTIONS (1)
  - OPTIC ATROPHY [None]
